FAERS Safety Report 12546650 (Version 2)
Quarter: 2016Q3

REPORT INFORMATION
  Report Type: Other
  Country: US (occurrence: US)
  Receive Date: 20160711
  Receipt Date: 20160721
  Transmission Date: 20161109
  Serious: No
  Sender: FDA-Public Use
  Company Number: US-G+W LABS-GW2016US000038

PATIENT

DRUGS (1)
  1. CICLOPIROX. [Suspect]
     Active Substance: CICLOPIROX
     Indication: PRODUCT USED FOR UNKNOWN INDICATION
     Dosage: 8 %, UNK, (POTENCY 80MG/ML)
     Route: 065
     Dates: start: 2008

REACTIONS (4)
  - Condition aggravated [Unknown]
  - Ingrowing nail [Unknown]
  - Onychomycosis [Unknown]
  - Drug ineffective [Unknown]
